FAERS Safety Report 5628642-6 (Version None)
Quarter: 2008Q1

REPORT INFORMATION
  Report Type: 
  Country: None (occurrence: None)
  Receive Date: 20080215
  Receipt Date: 20080206
  Transmission Date: 20080703
  Serious: Yes (Other)
  Sender: FDA-Public Use
  Company Number: US-PFIZER INC-2008011810

PATIENT
  Sex: Female
  Weight: 90.909 kg

DRUGS (3)
  1. DILANTIN [Suspect]
     Indication: EPILEPSY
  2. VALSARTAN [Suspect]
     Indication: HYPERTENSION
  3. DYAZIDE [Suspect]
     Indication: HYPERTENSION

REACTIONS (5)
  - CHEST PAIN [None]
  - HEADACHE [None]
  - HYPERTENSION [None]
  - IRRITABILITY [None]
  - SOMNOLENCE [None]
